FAERS Safety Report 5609793-9 (Version None)
Quarter: 2008Q1

REPORT INFORMATION
  Report Type: 
  Country: None (occurrence: None)
  Receive Date: 20080131
  Receipt Date: 20080122
  Transmission Date: 20080703
  Serious: Yes (Other)
  Sender: FDA-Public Use
  Company Number: US-GILEAD-2008-0015103

PATIENT
  Age: 32 Year
  Sex: Female

DRUGS (7)
  1. TRUVADA [Suspect]
     Route: 048
  2. KALETRA [Suspect]
     Indication: HIV INFECTION
     Route: 048
  3. KALETRA [Suspect]
     Route: 048
  4. PYRIMETHAMINE [Concomitant]
  5. FOLINIC ACID [Concomitant]
  6. CLINDAMYCIN HCL [Concomitant]
  7. BACTRIM [Concomitant]

REACTIONS (1)
  - ABORTION SPONTANEOUS [None]
